FAERS Safety Report 14893559 (Version 1)
Quarter: 2018Q2

REPORT INFORMATION
  Report Type: Spontaneous
  Country: FR (occurrence: FR)
  Receive Date: 20180514
  Receipt Date: 20180514
  Transmission Date: 20180711
  Serious: Yes (Death)
  Sender: FDA-Public Use
  Company Number: FR-SHIRE-FR201817472

PATIENT

DRUGS (1)
  1. CUVITRU [Suspect]
     Active Substance: HUMAN IMMUNOGLOBULIN G
     Indication: STILL^S DISEASE
     Dosage: UNK
     Route: 042

REACTIONS (1)
  - Drug ineffective for unapproved indication [Fatal]
